FAERS Safety Report 7478640-5 (Version None)
Quarter: 2011Q2

REPORT INFORMATION
  Report Type: 
  Country: None (occurrence: None)
  Receive Date: 20110513
  Receipt Date: 20110509
  Transmission Date: 20111010
  Serious: Yes (Other)
  Sender: FDA-Public Use
  Company Number: CHPA2011US06516

PATIENT
  Age: 82 Year
  Sex: Female
  Weight: 53.515 kg

DRUGS (6)
  1. ANTIDEPRESSANTS [Concomitant]
     Dosage: UNK, UNK
  2. NICOTINE [Suspect]
     Indication: SMOKING CESSATION THERAPY
     Dosage: 21 MG, QD
     Route: 062
     Dates: start: 20110428, end: 20110509
  3. STOOL SOFTENER [Concomitant]
     Dosage: UNK, UNK
  4. CHOLESTEROL [Concomitant]
     Dosage: UNK, UNK
  5. DRUG THERAPY NOS [Concomitant]
     Dosage: UNK, UNK
  6. DRUG THERAPY NOS [Concomitant]
     Indication: URINARY TRACT INFECTION
     Dosage: UNK, UNK

REACTIONS (3)
  - DECREASED APPETITE [None]
  - ASTHENIA [None]
  - BLOOD PRESSURE DECREASED [None]
